FAERS Safety Report 12387889 (Version 4)
Quarter: 2017Q3

REPORT INFORMATION
  Report Type: Spontaneous
  Country: US (occurrence: US)
  Receive Date: 20160520
  Receipt Date: 20170809
  Transmission Date: 20171127
  Serious: Yes (Other)
  Sender: FDA-Public Use
  Company Number: US-TEVA-661672ACC

PATIENT
  Sex: Female
  Weight: 65.83 kg

DRUGS (3)
  1. PRENATAL VITAMINS [Concomitant]
     Active Substance: VITAMINS
     Dosage: ONCE DAILY
     Dates: start: 201512
  2. PARAGARD T 380A [Suspect]
     Active Substance: COPPER
     Dates: start: 20130515, end: 20160115
  3. VITAMIN D [Concomitant]
     Active Substance: CHOLECALCIFEROL
     Dates: start: 201512

REACTIONS (1)
  - Pregnancy on contraceptive [Unknown]
